FAERS Safety Report 5699100-8 (Version None)
Quarter: 2008Q2

REPORT INFORMATION
  Report Type: 
  Country: None (occurrence: None)
  Receive Date: 20080404
  Receipt Date: 20080404
  Transmission Date: 20081010
  Serious: No
  Sender: FDA-Public Use
  Company Number: None

PATIENT
  Age: 62 Year
  Sex: Male
  Weight: 88.4514 kg

DRUGS (1)
  1. LIPITOR [Suspect]
     Indication: BLOOD CHOLESTEROL INCREASED
     Dosage: 40MG 1X DAILY PO
     Route: 048
     Dates: start: 20071001, end: 20080331

REACTIONS (4)
  - ASTHENIA [None]
  - GAIT DISTURBANCE [None]
  - NERVE INJURY [None]
  - PAIN [None]
